FAERS Safety Report 8822338 (Version 2)
Quarter: 2012Q4

REPORT INFORMATION
  Report Type: 
  Country: US (occurrence: US)
  Receive Date: 20121003
  Receipt Date: 20121026
  Transmission Date: 20130627
  Serious: No
  Sender: FDA-Public Use
  Company Number: US-VERTEX PHARMACEUTICAL INC.-2012-020886

PATIENT
  Age: 53 None
  Sex: Male
  Weight: 73 kg

DRUGS (6)
  1. VX-950 [Suspect]
     Indication: HEPATITIS C
     Dosage: 750 mg, tid
     Route: 048
     Dates: start: 20120813
  2. PEGASYS [Concomitant]
     Indication: HEPATITIS C
     Dosage: 180 ?g, qw
     Route: 058
     Dates: start: 20120812
  3. RIBAVIRIN [Concomitant]
     Indication: HEPATITIS C
     Dosage: 400 mg AM, 600 mg PM
     Route: 048
     Dates: start: 20120813
  4. RIBAVIRIN [Concomitant]
     Dosage: 200 mg AM, 400 mg PM
     Route: 048
  5. METFORMIN [Concomitant]
     Indication: DIABETES MELLITUS
     Dosage: 850 mg, qd
     Route: 048
  6. IBUPROFEN [Concomitant]
     Indication: DISCOMFORT
     Dosage: UNK, prn
     Route: 048

REACTIONS (9)
  - Hypersomnia [Not Recovered/Not Resolved]
  - Pain [Not Recovered/Not Resolved]
  - Malaise [Not Recovered/Not Resolved]
  - Decreased appetite [Recovered/Resolved]
  - Asthenia [Not Recovered/Not Resolved]
  - Rash papular [Not Recovered/Not Resolved]
  - Blister [Not Recovered/Not Resolved]
  - Haemorrhoids [Not Recovered/Not Resolved]
  - Haematochezia [Not Recovered/Not Resolved]
